FAERS Safety Report 13876374 (Version 1)
Quarter: 2017Q3

REPORT INFORMATION
  Report Type: Spontaneous
  Country: US (occurrence: US)
  Receive Date: 20170817
  Receipt Date: 20170817
  Transmission Date: 20171127
  Serious: No
  Sender: FDA-Public Use
  Company Number: US-BAYER-2017-157114

PATIENT
  Age: 81 Year
  Sex: Male
  Weight: 113 kg

DRUGS (1)
  1. MIRALAX [Suspect]
     Active Substance: POLYETHYLENE GLYCOL 3350
     Indication: ASTHMA
     Route: 048
     Dates: end: 20170815

REACTIONS (1)
  - Incorrect drug administration duration [Unknown]
